FAERS Safety Report 8965839 (Version 1)
Quarter: 2012Q4

REPORT INFORMATION
  Report Type: Spontaneous
  Country: US (occurrence: None)
  Receive Date: 20121213
  Receipt Date: 20121213
  Transmission Date: 20130627
  Serious: Yes (Other)
  Sender: FDA-Public Use
  Company Number: None

PATIENT
  Age: 69 Year
  Sex: Female
  Weight: 58.97 kg

DRUGS (1)
  1. STIVARGA [Suspect]
     Dosage: 40mg 3 daily po
     Route: 048
     Dates: start: 20121111, end: 20121212

REACTIONS (7)
  - Nausea [None]
  - Vomiting [None]
  - Diarrhoea [None]
  - Blood pressure increased [None]
  - Urticaria [None]
  - Oedema mouth [None]
  - Oral pain [None]
